APPROVED DRUG PRODUCT: RBC-SCAN
Active Ingredient: TECHNETIUM TC-99M RED BLOOD CELL KIT
Strength: N/A
Dosage Form/Route: INJECTABLE;INJECTION
Application: N020063 | Product #001
Applicant: CADEMA MEDICAL PRODUCTS INC
Approved: Jun 11, 1992 | RLD: No | RS: No | Type: DISCN